FAERS Safety Report 5359785-2 (Version None)
Quarter: 2007Q2

REPORT INFORMATION
  Report Type: 
  Country: None (occurrence: None)
  Receive Date: 20070530
  Receipt Date: 20070318
  Transmission Date: 20071010
  Serious: No
  Sender: FDA-Public Use
  Company Number: 2007PV031924

PATIENT
  Age: 58 Year
  Sex: Female
  Weight: 84.369 kg

DRUGS (4)
  1. BYETTA [Suspect]
     Indication: DIABETES MELLITUS NON-INSULIN-DEPENDENT
     Dosage: 5 MCG;BID;SC
     Route: 058
     Dates: start: 20070308
  2. NOVOLOG [Concomitant]
  3. NOVOLOG MIX 70/30 [Concomitant]
  4. GLIPIZIDE [Concomitant]

REACTIONS (1)
  - EPISTAXIS [None]
